FAERS Safety Report 16387139 (Version 2)
Quarter: 2019Q3

REPORT INFORMATION
  Report Type: Spontaneous
  Country: CA (occurrence: CA)
  Receive Date: 20190604
  Receipt Date: 20190730
  Transmission Date: 20191004
  Serious: Yes (Other)
  Sender: FDA-Public Use
  Company Number: CA-AUROBINDO-AUR-APL-2019-030036

PATIENT

DRUGS (16)
  1. ALENDRONIC ACID TABLETS [Suspect]
     Active Substance: ALENDRONIC ACID
     Indication: OSTEOPOROSIS POSTMENOPAUSAL
  2. VITAMIN D [Suspect]
     Active Substance: VITAMIN D NOS
     Indication: OSTEOGENESIS IMPERFECTA
  3. ESTRADIOL. [Concomitant]
     Active Substance: ESTRADIOL
     Indication: MENOPAUSAL SYMPTOMS PROPHYLAXIS
     Dosage: 0.025 MILLIGRAM, ONCE A DAY
     Route: 062
  4. ALENDRONIC ACID TABLETS [Suspect]
     Active Substance: ALENDRONIC ACID
     Indication: BONE LOSS
  5. ALENDRONIC ACID TABLETS [Suspect]
     Active Substance: ALENDRONIC ACID
     Indication: OSTEOGENESIS IMPERFECTA
  6. ESTRADIOL. [Concomitant]
     Active Substance: ESTRADIOL
     Indication: OSTEOGENESIS IMPERFECTA
     Dosage: UNK
     Route: 065
  7. CALCIUM [Concomitant]
     Active Substance: CALCIUM
     Indication: MENOPAUSAL SYMPTOMS
     Dosage: UNK
     Route: 065
  8. CALCIUM [Concomitant]
     Active Substance: CALCIUM
     Indication: OSTEOGENESIS IMPERFECTA
  9. VITAMIN D [Suspect]
     Active Substance: VITAMIN D NOS
     Indication: MENOPAUSAL SYMPTOMS
     Dosage: UNK
     Route: 065
  10. PAMIDRONATE DISODIUM. [Suspect]
     Active Substance: PAMIDRONATE DISODIUM
     Indication: PLASMA CELL MYELOMA
     Dosage: 60 MILLIGRAM, ONCE A DAY
     Route: 042
  11. PAMIDRONATE DISODIUM. [Suspect]
     Active Substance: PAMIDRONATE DISODIUM
     Indication: MUSCULOSKELETAL DISORDER
     Dosage: 90 MILLIGRAM, ONCE A DAY
     Route: 042
  12. PAMIDRONATE DISODIUM. [Suspect]
     Active Substance: PAMIDRONATE DISODIUM
     Indication: MUSCULOSKELETAL DISORDER
     Dosage: 60 MILLIGRAM
     Route: 017
  13. RISEDRONATE TABLET [Suspect]
     Active Substance: RISEDRONATE SODIUM
     Indication: ATYPICAL FEMUR FRACTURE
  14. RISEDRONATE TABLET [Suspect]
     Active Substance: RISEDRONATE SODIUM
     Indication: BONE LOSS
  15. ALENDRONIC ACID TABLETS [Suspect]
     Active Substance: ALENDRONIC ACID
     Indication: PATELLA FRACTURE
     Dosage: UNK
     Route: 065
  16. RISEDRONATE TABLET [Suspect]
     Active Substance: RISEDRONATE SODIUM
     Indication: OSTEOPOROSIS POSTMENOPAUSAL
     Dosage: UNK
     Route: 065

REACTIONS (6)
  - Scapula fracture [Recovered/Resolved]
  - Plasma cell myeloma [Recovered/Resolved]
  - Atypical femur fracture [Recovered/Resolved]
  - Fall [Recovered/Resolved]
  - Spinal compression fracture [Recovered/Resolved]
  - Back pain [Recovered/Resolved]
